FAERS Safety Report 21333649 (Version 1)
Quarter: 2022Q3

REPORT INFORMATION
  Report Type: Spontaneous
  Country: US (occurrence: US)
  Receive Date: 20220914
  Receipt Date: 20220914
  Transmission Date: 20221026
  Serious: Yes (Other)
  Sender: FDA-Public Use
  Company Number: US-ABBVIE-22K-163-4534131-00

PATIENT
  Sex: Male

DRUGS (1)
  1. HUMIRA [Suspect]
     Active Substance: ADALIMUMAB
     Indication: Pyoderma gangrenosum
     Route: 058

REACTIONS (5)
  - Drug ineffective [Unknown]
  - Blood creatinine increased [Unknown]
  - Renal impairment [Unknown]
  - Swelling [Not Recovered/Not Resolved]
  - Infection [Not Recovered/Not Resolved]
